FAERS Safety Report 8524912-2 (Version None)
Quarter: 2012Q3

REPORT INFORMATION
  Report Type: 
  Country: None (occurrence: None)
  Receive Date: 20120720
  Receipt Date: 20120712
  Transmission Date: 20120928
  Serious: Yes (Other)
  Sender: FDA-Public Use
  Company Number: FR-JNJFOC-20120609500

PATIENT
  Sex: Male
  Weight: 106 kg

DRUGS (3)
  1. STELARA [Suspect]
     Indication: PSORIASIS
     Dosage: TOTALLY, THE PATIENT RECEIVED 3 INJECTIONS
     Route: 058
     Dates: start: 20120123
  2. NOCTRAN [Concomitant]
     Indication: SLEEP DISORDER
     Dosage: INITIATED SINCE SEVERAL YEARS
     Route: 065
  3. RAMIPRIL [Concomitant]
     Indication: HYPERTENSION
     Dosage: INITIATED SINCE SEVERAL YEARS
     Route: 065

REACTIONS (1)
  - BASAL CELL CARCINOMA [None]
